FAERS Safety Report 7046255-9 (Version None)
Quarter: 2010Q4

REPORT INFORMATION
  Report Type: 
  Country: None (occurrence: None)
  Receive Date: 20101014
  Receipt Date: 20101007
  Transmission Date: 20110411
  Serious: Yes (Hospitalization)
  Sender: FDA-Public Use
  Company Number: A0886189A

PATIENT
  Sex: Male
  Weight: 51 kg

DRUGS (4)
  1. SERETIDE [Suspect]
     Indication: EMPHYSEMA
     Dosage: 1PUFF TWICE PER DAY
     Route: 055
     Dates: start: 20090901
  2. SPIRIVA [Suspect]
     Indication: EMPHYSEMA
     Dosage: 2PUFF PER DAY
     Route: 055
     Dates: start: 20090901
  3. ACETYLCYSTEINE [Concomitant]
     Dosage: 1SAC PER DAY
     Dates: start: 20090101
  4. OLCADIL [Concomitant]
     Dosage: 2MG AT NIGHT
     Route: 048
     Dates: start: 20100201

REACTIONS (9)
  - COUGH [None]
  - DRUG INEFFECTIVE [None]
  - DYSPNOEA [None]
  - ENTERITIS INFECTIOUS [None]
  - ENTEROCOLITIS [None]
  - FATIGUE [None]
  - PNEUMONIA [None]
  - PRODUCTIVE COUGH [None]
  - PYREXIA [None]
